FAERS Safety Report 25673941 (Version 3)
Quarter: 2025Q3

REPORT INFORMATION
  Report Type: Report from Study
  Country: US (occurrence: US)
  Receive Date: 20250813
  Receipt Date: 20250922
  Transmission Date: 20251021
  Serious: No
  Sender: SUNOVION
  Company Number: US-SUMITOMO PHARMA SWITZERLAND GMBH-2025SPA008617

PATIENT
  Age: 76 Year
  Sex: Male

DRUGS (15)
  1. ORGOVYX [Suspect]
     Active Substance: RELUGOLIX
     Indication: Prostate cancer
     Route: 048
     Dates: start: 20250623, end: 20250623
  2. ORGOVYX [Suspect]
     Active Substance: RELUGOLIX
     Route: 048
  3. ALLOPURINOL [Concomitant]
     Active Substance: ALLOPURINOL
  4. AMLODIPINE [Concomitant]
     Active Substance: AMLODIPINE BESYLATE
  5. COLCRYS [Concomitant]
     Active Substance: COLCHICINE
  6. ELIQUIS [Concomitant]
     Active Substance: APIXABAN
  7. FARXIGA [Concomitant]
     Active Substance: DAPAGLIFLOZIN PROPANEDIOL
  8. CALCIUM [Concomitant]
     Active Substance: CALCIUM
  9. LOSARTAN [Concomitant]
     Active Substance: LOSARTAN
  10. DIETARY SUPPLEMENT [Concomitant]
     Active Substance: DIETARY SUPPLEMENT
  11. SOTALOL [Concomitant]
     Active Substance: SOTALOL
  12. VITAMINS [Concomitant]
     Active Substance: VITAMINS
  13. TAMSULOSIN [Concomitant]
     Active Substance: TAMSULOSIN
  14. TRAZODONE [Concomitant]
     Active Substance: TRAZODONE HYDROCHLORIDE
  15. VITAMIN C [Concomitant]
     Active Substance: ASCORBIC ACID

REACTIONS (8)
  - Mental status changes [Unknown]
  - Lethargy [Unknown]
  - Wheezing [Unknown]
  - Rhinorrhoea [Unknown]
  - Accident [Unknown]
  - Shoulder fracture [Unknown]
  - Arthralgia [Unknown]
  - Hot flush [Unknown]

NARRATIVE: CASE EVENT DATE: 20250827
